FAERS Safety Report 11489799 (Version 1)
Quarter: 2015Q3

REPORT INFORMATION
  Report Type: Spontaneous
  Country: US (occurrence: US)
  Receive Date: 20150910
  Receipt Date: 20150910
  Transmission Date: 20151125
  Serious: Yes (Other)
  Sender: FDA-Public Use
  Company Number: US-AMGEN-USASP2015092235

PATIENT
  Age: 33 Year
  Sex: Female
  Weight: 39.46 kg

DRUGS (5)
  1. SKELAXIN [Concomitant]
     Active Substance: METAXALONE
     Dosage: UNK
  2. ENBREL [Suspect]
     Active Substance: ETANERCEPT
     Indication: RHEUMATOID ARTHRITIS
     Dosage: 25 MG, 2 TIMES/WK
     Route: 058
     Dates: start: 2001
  3. DICLOFENAC [Concomitant]
     Active Substance: DICLOFENAC
     Dosage: UNK
  4. AMBIEN [Concomitant]
     Active Substance: ZOLPIDEM TARTRATE
     Dosage: UNK
  5. FIORICET [Concomitant]
     Active Substance: ACETAMINOPHEN\BUTALBITAL\CAFFEINE
     Dosage: UNK

REACTIONS (5)
  - Insomnia [Unknown]
  - Pregnancy [Unknown]
  - Limb operation [Unknown]
  - Remission not achieved [Unknown]
  - Foot operation [Unknown]

NARRATIVE: CASE EVENT DATE: 2005
